FAERS Safety Report 14408317 (Version 1)
Quarter: 2018Q1

REPORT INFORMATION
  Report Type: Spontaneous
  Country: US (occurrence: US)
  Receive Date: 20180118
  Receipt Date: 20180118
  Transmission Date: 20180509
  Serious: Yes (Other)
  Sender: FDA-Public Use
  Company Number: US-SA-2018SA009848

PATIENT
  Age: 48 Year
  Sex: Male

DRUGS (6)
  1. MOBIC [Concomitant]
     Active Substance: MELOXICAM
  2. NAPROXEN. [Concomitant]
     Active Substance: NAPROXEN
  3. PLAQUENIL [Concomitant]
     Active Substance: HYDROXYCHLOROQUINE SULFATE
     Route: 065
  4. HUMIRA [Concomitant]
     Active Substance: ADALIMUMAB
     Route: 065
  5. CELEBREX [Concomitant]
     Active Substance: CELECOXIB
  6. ARAVA [Suspect]
     Active Substance: LEFLUNOMIDE
     Route: 048

REACTIONS (1)
  - Liver function test increased [Unknown]

NARRATIVE: CASE EVENT DATE: 20111209
